FAERS Safety Report 22908017 (Version 3)
Quarter: 2023Q4

REPORT INFORMATION
  Report Type: Report from Study
  Country: DE (occurrence: DE)
  Receive Date: 20230905
  Receipt Date: 20231020
  Transmission Date: 20240110
  Serious: Yes (Life-Threatening)
  Sender: FDA-Public Use
  Company Number: DE-PFIZER INC-PV202300149456

PATIENT
  Age: 60 Year
  Sex: Female

DRUGS (5)
  1. GEMTUZUMAB OZOGAMICIN [Suspect]
     Active Substance: GEMTUZUMAB OZOGAMICIN
     Dosage: 4.5 MG
     Route: 042
     Dates: start: 20230203
  2. CYTARABINE [Concomitant]
     Active Substance: CYTARABINE
     Dosage: 374 MG
     Dates: start: 20230203
  3. DAUNORUBICIN [Concomitant]
     Active Substance: DAUNORUBICIN
     Dosage: 112.2 MG
     Dates: start: 20230203
  4. NOREPINEPHRINE [Concomitant]
     Active Substance: NOREPINEPHRINE
     Indication: Cardiac arrest
     Dosage: 8 MG/H; VIA PERFUSER
     Dates: start: 20230305
  5. SUPRARENIN [Concomitant]
     Active Substance: EPINEPHRINE
     Dosage: 5 MG (CUMULATIVE AT REA)
     Route: 042
     Dates: start: 20230305

REACTIONS (1)
  - Pharyngeal haemorrhage [Recovered/Resolved]

NARRATIVE: CASE EVENT DATE: 20230305
